FAERS Safety Report 4341404-5 (Version None)
Quarter: 2004Q2

REPORT INFORMATION
  Report Type: 
  Country: None (occurrence: None)
  Receive Date: 20040415
  Receipt Date: 20040407
  Transmission Date: 20050107
  Serious: Yes (Hospitalization)
  Sender: FDA-Public Use
  Company Number: 04P-062-0256268-00

PATIENT
  Age: 4 Year
  Sex: Male
  Weight: 17 kg

DRUGS (1)
  1. BIAXIN [Suspect]
     Indication: TONSILLITIS
     Dosage: PER ORAL
     Route: 048
     Dates: start: 20040216, end: 20040216

REACTIONS (2)
  - CONFUSIONAL STATE [None]
  - RESTLESSNESS [None]
